FAERS Safety Report 4694983-2 (Version None)
Quarter: 2005Q2

REPORT INFORMATION
  Report Type: 
  Country: None (occurrence: None)
  Receive Date: 20050617
  Receipt Date: 20050331
  Transmission Date: 20051028
  Serious: Yes (Hospitalization, Other)
  Sender: FDA-Public Use
  Company Number: US-2004-036966

PATIENT
  Age: 54 Year
  Sex: Female
  Weight: 63.9 kg

DRUGS (5)
  1. FLUDARA [Suspect]
     Indication: NON-HODGKIN'S LYMPHOMA
     Dosage: 25 MG/M2/DQ21D,D2-5 (5 CYCLES), INTRAVENOUS
     Route: 042
     Dates: start: 20040628, end: 20040924
  2. CYTOXAN [Suspect]
     Indication: NON-HODGKIN'S LYMPHOMA
     Dates: start: 20040601, end: 20040901
  3. CHOP (DOXORUBICIN, VINCRISTINE, PREDNISONE) [Concomitant]
  4. DYAZIDE [Concomitant]
  5. BACTRIM [Concomitant]

REACTIONS (1)
  - BONE MARROW DEPRESSION [None]
